FAERS Safety Report 8486070-2 (Version None)
Quarter: 2012Q3

REPORT INFORMATION
  Report Type: 
  Country: None (occurrence: None)
  Receive Date: 20120703
  Receipt Date: 20120623
  Transmission Date: 20120928
  Serious: Yes (Other)
  Sender: FDA-Public Use
  Company Number: US-VERTEX PHARMACEUTICALS INC.-AE-2012-007188

PATIENT
  Sex: Female
  Weight: 98.972 kg

DRUGS (9)
  1. COPEGUS [Concomitant]
     Indication: HEPATITIS C
     Route: 048
     Dates: start: 20120327
  2. LOSARTAN POTASSIUM AND HYDROCHLOROTHIAZIDE [Concomitant]
     Indication: HYPERTENSION
     Route: 048
  3. OMEPRAZOLE [Concomitant]
     Indication: GASTROOESOPHAGEAL REFLUX DISEASE
     Route: 048
  4. MULTI-VITAMIN [Concomitant]
     Route: 048
  5. ZYRTEC [Concomitant]
     Indication: HYPERSENSITIVITY
  6. PEGASYS [Concomitant]
     Indication: HEPATITIS C
     Route: 058
     Dates: start: 20120327
  7. INCIVEK [Suspect]
     Indication: HEPATITIS C
     Route: 048
     Dates: start: 20120327, end: 20120619
  8. AMBIEN [Concomitant]
  9. PRILOSEC [Concomitant]
     Indication: GASTROOESOPHAGEAL REFLUX DISEASE

REACTIONS (7)
  - DYSPNOEA [None]
  - FEELING ABNORMAL [None]
  - ECZEMA [None]
  - NASOPHARYNGITIS [None]
  - NERVOUSNESS [None]
  - EXFOLIATIVE RASH [None]
  - NAUSEA [None]
